FAERS Safety Report 9639355 (Version 2)
Quarter: 2014Q2

REPORT INFORMATION
  Report Type: Spontaneous
  Country: ZA (occurrence: None)
  Receive Date: 20131021
  Receipt Date: 20140530
  Transmission Date: 20141212
  Serious: Yes (Hospitalization)
  Sender: FDA-Public Use
  Company Number: SYM-2013-11612

PATIENT
  Age: 72 Year
  Sex: Female
  Weight: 64 kg

DRUGS (1)
  1. ALDARA (IMIQUIMOD) (250 MILLIGRAM, CREAM) (IMIQUIMOD) [Suspect]
     Indication: ACTINIC KERATOSIS
     Dosage: 3 IN 1 WK

REACTIONS (4)
  - Visual impairment [None]
  - Gastrointestinal disorder [None]
  - Dehydration [None]
  - Vomiting [None]
